FAERS Safety Report 11938279 (Version 1)
Quarter: 2016Q1

REPORT INFORMATION
  Report Type: Spontaneous
  Country: US (occurrence: US)
  Receive Date: 20160122
  Receipt Date: 20160122
  Transmission Date: 20160526
  Serious: No
  Sender: FDA-Public Use
  Company Number: US-BAYER-2016-012780

PATIENT
  Sex: Male

DRUGS (1)
  1. ALEVE [Suspect]
     Active Substance: NAPROXEN SODIUM
     Dosage: 3 DF, ONCE
     Dates: start: 20160119, end: 20160119

REACTIONS (4)
  - Swelling face [None]
  - Urticaria [None]
  - Product use issue [None]
  - Drug hypersensitivity [None]

NARRATIVE: CASE EVENT DATE: 20160119
